FAERS Safety Report 13973282 (Version 1)
Quarter: 2017Q3

REPORT INFORMATION
  Report Type: Spontaneous
  Country: SE (occurrence: SE)
  Receive Date: 20170915
  Receipt Date: 20170915
  Transmission Date: 20171128
  Serious: Yes (Hospitalization)
  Sender: FDA-Public Use
  Company Number: SE-MYLANLABS-2017M1056390

PATIENT
  Age: 90 Year
  Sex: Female

DRUGS (2)
  1. FURADANTIN [Suspect]
     Active Substance: NITROFURANTOIN
     Indication: URINARY TRACT INFECTION
     Dosage: UNK
     Dates: start: 20170803, end: 20170808
  2. LOSARSTAD COMP [Concomitant]
     Active Substance: HYDROCHLOROTHIAZIDE\LOSARTAN POTASSIUM
     Dosage: UNK

REACTIONS (5)
  - Rash [None]
  - Platelet count decreased [None]
  - Purpura [Unknown]
  - Body temperature increased [None]
  - C-reactive protein increased [None]

NARRATIVE: CASE EVENT DATE: 20170811
